FAERS Safety Report 10872178 (Version 1)
Quarter: 2015Q1

REPORT INFORMATION
  Report Type: Spontaneous
  Country: US (occurrence: None)
  Receive Date: 20150223
  Receipt Date: 20150223
  Transmission Date: 20150721
  Serious: Yes (Life-Threatening, Disabling)
  Sender: FDA-Public Use
  Company Number: None

PATIENT
  Age: 49 Year
  Sex: Female
  Weight: 52.16 kg

DRUGS (3)
  1. CORTICOSTEROIDS [Concomitant]
     Active Substance: CORTICOSTEROID NOS
  2. XANAX [Concomitant]
     Active Substance: ALPRAZOLAM
  3. LEVAQUIN [Suspect]
     Active Substance: LEVOFLOXACIN
     Indication: INFECTION
     Dosage: 7 DAYS MULTIPLE TIMES, ONE PILL
     Route: 048

REACTIONS (9)
  - Dyspnoea [None]
  - Dry eye [None]
  - Nervous system disorder [None]
  - Dizziness [None]
  - Myalgia [None]
  - Trismus [None]
  - Amnesia [None]
  - Joint lock [None]
  - Eye disorder [None]

NARRATIVE: CASE EVENT DATE: 20110215
